FAERS Safety Report 21889592 (Version 2)
Quarter: 2024Q1

REPORT INFORMATION
  Report Type: Spontaneous
  Country: GB (occurrence: None)
  Receive Date: 20230120
  Receipt Date: 20240202
  Transmission Date: 20240409
  Serious: Yes (Other)
  Sender: FDA-Public Use
  Company Number: 2023A009918

PATIENT
  Age: 58 Year
  Sex: Female

DRUGS (1)
  1. ESOMEPRAZOLE [Suspect]
     Active Substance: ESOMEPRAZOLE

REACTIONS (1)
  - Toothache [Not Recovered/Not Resolved]

NARRATIVE: CASE EVENT DATE: 20220901
